FAERS Safety Report 12442250 (Version 1)
Quarter: 2016Q2

REPORT INFORMATION
  Report Type: Spontaneous
  Country: US (occurrence: US)
  Receive Date: 20160607
  Receipt Date: 20160607
  Transmission Date: 20160815
  Serious: Yes (Life-Threatening, Other)
  Sender: FDA-Public Use
  Company Number: US-PRESTIGE BRANDS -1053418

PATIENT
  Age: 91 Year
  Sex: Female

DRUGS (1)
  1. CHLORASEPTIC SORE THROAT MENTHOL [Suspect]
     Active Substance: PHENOL
     Indication: OROPHARYNGEAL PAIN
     Route: 048
     Dates: start: 20160508, end: 20160508

REACTIONS (5)
  - Pharyngeal oedema [Recovered/Resolved]
  - Dyspnoea [Recovered/Resolved]
  - Oral mucosal blistering [None]
  - Choking [None]
  - Swollen tongue [Recovered/Resolved]

NARRATIVE: CASE EVENT DATE: 20160508
